FAERS Safety Report 25542565 (Version 1)
Quarter: 2025Q3

REPORT INFORMATION
  Report Type: Spontaneous
  Country: EU (occurrence: EU)
  Receive Date: 20250711
  Receipt Date: 20250711
  Transmission Date: 20251021
  Serious: Yes (Hospitalization)
  Sender: AUROBINDO
  Company Number: EU-LRB-01070399

PATIENT
  Age: 39 Year
  Sex: Male
  Weight: 69 kg

DRUGS (2)
  1. LORAZEPAM [Suspect]
     Active Substance: LORAZEPAM
     Indication: Agitation
     Dosage: 2.5 MILLIGRAM, ONCE A DAY
     Route: 048
     Dates: start: 20250614
  2. PALIPERIDONE [Suspect]
     Active Substance: PALIPERIDONE
     Indication: Schizophrenia
     Dosage: 6 MILLIGRAM, ONCE A DAY
     Route: 048
     Dates: start: 20250617

REACTIONS (1)
  - Urinary incontinence [Not Recovered/Not Resolved]
